FAERS Safety Report 20741614 (Version 1)
Quarter: 2022Q2

REPORT INFORMATION
  Report Type: Spontaneous
  Country: AU (occurrence: AU)
  Receive Date: 20220422
  Receipt Date: 20220422
  Transmission Date: 20220721
  Serious: Yes (Other)
  Sender: FDA-Public Use
  Company Number: AU-JNJFOC-20220431148

PATIENT
  Age: 54 Year
  Sex: Male

DRUGS (9)
  1. IMBRUVICA [Suspect]
     Active Substance: IBRUTINIB
     Indication: Chronic graft versus host disease
     Route: 048
  2. MYCOPHENOLATE MOFETIL [Suspect]
     Active Substance: MYCOPHENOLATE MOFETIL
     Indication: Chronic graft versus host disease
     Route: 048
  3. MYCOPHENOLATE MOFETIL [Suspect]
     Active Substance: MYCOPHENOLATE MOFETIL
     Route: 048
     Dates: start: 2018
  4. PREDNISOLONE [Suspect]
     Active Substance: PREDNISOLONE
     Indication: Chronic graft versus host disease
     Route: 065
  5. POSACONAZOLE [Suspect]
     Active Substance: POSACONAZOLE
     Indication: Chronic graft versus host disease
     Route: 065
  6. POSACONAZOLE [Suspect]
     Active Substance: POSACONAZOLE
     Route: 048
  7. CYCLOSPORINE [Suspect]
     Active Substance: CYCLOSPORINE
     Indication: Chronic graft versus host disease
     Route: 048
  8. CYCLOSPORINE [Suspect]
     Active Substance: CYCLOSPORINE
     Route: 048
     Dates: start: 2017
  9. CYCLOSPORINE [Suspect]
     Active Substance: CYCLOSPORINE
     Route: 048
     Dates: start: 2020

REACTIONS (13)
  - Cataract [Recovering/Resolving]
  - Glaucoma [Recovering/Resolving]
  - Osteoporosis [Recovering/Resolving]
  - Myositis [Recovering/Resolving]
  - Chronic graft versus host disease in eye [Unknown]
  - Chronic graft versus host disease in liver [Unknown]
  - Chronic graft versus host disease in skin [Unknown]
  - Haemorrhage [Unknown]
  - Vision blurred [Unknown]
  - Mobility decreased [Unknown]
  - Toxicity to various agents [Unknown]
  - Tendonitis [Unknown]
  - Pain [Unknown]

NARRATIVE: CASE EVENT DATE: 20170101
